FAERS Safety Report 19998174 (Version 2)
Quarter: 2022Q4

REPORT INFORMATION
  Report Type: Spontaneous
  Country: DK (occurrence: DK)
  Receive Date: 20211026
  Receipt Date: 20221219
  Transmission Date: 20230113
  Serious: Yes (Hospitalization, Disabling)
  Sender: FDA-Public Use
  Company Number: None

PATIENT
  Age: 52 Year
  Sex: Female

DRUGS (8)
  1. GENTAMICIN [Suspect]
     Active Substance: GENTAMICIN
     Indication: Urosepsis
     Dosage: 1.2 MG
     Route: 030
     Dates: start: 201802
  2. GENTAMICIN [Suspect]
     Active Substance: GENTAMICIN
     Indication: Urinary tract infection
     Dosage: 5 MG/KG, Q24H (SOLUTION FOR INFUSION)
     Route: 042
     Dates: start: 20180218, end: 20180220
  3. GENTAMICIN [Suspect]
     Active Substance: GENTAMICIN
     Dosage: 5 MG/KG, QD (SOLUTION FOR INFUSION)
     Route: 042
     Dates: start: 20210525
  4. PIPERACILLIN AND TAZOBACTAM [Suspect]
     Active Substance: PIPERACILLIN SODIUM\TAZOBACTAM SODIUM
     Indication: Sepsis
     Dosage: UNK
     Route: 065
     Dates: start: 20180220, end: 20180224
  5. AMDINOCILLIN PIVOXIL [Suspect]
     Active Substance: AMDINOCILLIN PIVOXIL
     Indication: Sepsis
     Dosage: 2400 MG, QD (DOSE FOR 10 DAYS IN TOTAL. DOSE REDUCED TO 400 MG 3 TIMES A DAY ON 02MAR2018. STRENGH:
     Route: 048
     Dates: start: 20180224, end: 20180306
  6. NITROFURANTOIN [Suspect]
     Active Substance: NITROFURANTOIN
     Indication: Prophylaxis urinary tract infection
     Dosage: 200 MG, QD
     Route: 048
     Dates: start: 20180314
  7. SULFAMETHIZOLE [Suspect]
     Active Substance: SULFAMETHIZOLE
     Indication: Urinary tract infection
     Dosage: UNK
     Route: 048
     Dates: start: 20180306
  8. AMPICILLIN [Suspect]
     Active Substance: AMPICILLIN
     Indication: Urinary tract infection
     Dosage: 2 G, Q6H
     Route: 042
     Dates: start: 20180218, end: 20180220

REACTIONS (5)
  - Balance disorder [Not Recovered/Not Resolved]
  - Dizziness [Not Recovered/Not Resolved]
  - Vestibular disorder [Not Recovered/Not Resolved]
  - Feeling drunk [Unknown]
  - Nausea [Unknown]

NARRATIVE: CASE EVENT DATE: 20180201
